FAERS Safety Report 16982941 (Version 1)
Quarter: 2019Q4

REPORT INFORMATION
  Report Type: Spontaneous
  Country: US (occurrence: US)
  Receive Date: 20190916
  Receipt Date: 20190916
  Transmission Date: 20200122
  Serious: No
  Sender: FDA-Public Use
  Company Number: None

PATIENT
  Age: 66 Year
  Sex: Male

DRUGS (12)
  1. DIPHENTHYDRAMINE [Concomitant]
  2. ZELBORAF [Concomitant]
     Active Substance: VEMURAFENIB
  3. ASPIRIN. [Concomitant]
     Active Substance: ASPIRIN
  4. FUROSEMIDE. [Concomitant]
     Active Substance: FUROSEMIDE
  5. GLIMEPRIDE [Concomitant]
     Active Substance: GLIMEPIRIDE
  6. ESCITALOPRAM [Concomitant]
     Active Substance: ESCITALOPRAM OXALATE
  7. MULTIPLE VIT [Concomitant]
  8. ATORVASTATIN [Concomitant]
     Active Substance: ATORVASTATIN
  9. METFORMIN [Concomitant]
     Active Substance: METFORMIN HYDROCHLORIDE
  10. LISINOPRIL. [Concomitant]
     Active Substance: LISINOPRIL
  11. PROBIOTIC [Concomitant]
     Active Substance: PROBIOTICS NOS
  12. COTELLIC [Suspect]
     Active Substance: COBIMETINIB
     Indication: MALIGNANT MELANOMA
     Dosage: ?          OTHER FREQUENCY:21/28 DAYS;?
     Route: 048
     Dates: start: 20190727

REACTIONS (4)
  - Diarrhoea [None]
  - Decreased appetite [None]
  - Fatigue [None]
  - Nausea [None]
